FAERS Safety Report 8359269-3 (Version None)
Quarter: 2012Q2

REPORT INFORMATION
  Report Type: 
  Country: None (occurrence: None)
  Receive Date: 20120515
  Receipt Date: 20120508
  Transmission Date: 20120825
  Serious: Yes (Death, Hospitalization, Other)
  Sender: FDA-Public Use
  Company Number: BR-SANOFI-AVENTIS-2012SA022191

PATIENT
  Age: 20 Year
  Sex: Female

DRUGS (4)
  1. OPTIPEN [Suspect]
     Indication: DEVICE THERAPY
     Dates: end: 20110401
  2. HUMALOG [Concomitant]
     Indication: TYPE 1 DIABETES MELLITUS
     Dosage: DOSAGE ACCORDING TO GLYCEMIC VALUES
     Route: 058
     Dates: end: 20110401
  3. LANTUS [Suspect]
     Dosage: STRENGTH 3 ML CARTRIDGE
     Route: 058
     Dates: end: 20110401
  4. LEVOTHYROXINE SODIUM [Concomitant]
     Indication: HYPOTHYROIDISM
     Dosage: STRENGTH 100 MCG
     Route: 048
     Dates: end: 20110401

REACTIONS (7)
  - DYSPNOEA [None]
  - CARDIAC ARREST [None]
  - RESPIRATORY FAILURE [None]
  - HYPERGLYCAEMIA [None]
  - INFECTION [None]
  - BACK PAIN [None]
  - GENERAL PHYSICAL HEALTH DETERIORATION [None]
